FAERS Safety Report 6864151-4 (Version None)
Quarter: 2010Q3

REPORT INFORMATION
  Report Type: 
  Country: None (occurrence: None)
  Receive Date: 20100721
  Receipt Date: 20080318
  Transmission Date: 20110219
  Serious: No
  Sender: FDA-Public Use
  Company Number: US-PFIZER INC-2008024974

PATIENT
  Sex: Female
  Weight: 73.636 kg

DRUGS (6)
  1. CHAMPIX [Suspect]
     Indication: SMOKING CESSATION THERAPY
     Dates: start: 20080201
  2. LIPITOR [Concomitant]
  3. ALLEGRA D 24 HOUR [Concomitant]
  4. LITHIUM [Concomitant]
  5. ANTIDEPRESSANTS [Concomitant]
  6. SYNTHROID [Concomitant]

REACTIONS (5)
  - ARTHRALGIA [None]
  - DEPRESSION [None]
  - INSOMNIA [None]
  - MYALGIA [None]
  - NAUSEA [None]
